FAERS Safety Report 10494271 (Version 2)
Quarter: 2014Q4

REPORT INFORMATION
  Report Type: Spontaneous
  Country: US (occurrence: US)
  Receive Date: 20141003
  Receipt Date: 20141217
  Transmission Date: 20150528
  Serious: Yes (Hospitalization, Other)
  Sender: FDA-Public Use
  Company Number: US-GLAXOSMITHKLINE-A1090772A

PATIENT
  Sex: Male

DRUGS (2)
  1. LAMICTAL [Suspect]
     Active Substance: LAMOTRIGINE
     Indication: PRODUCT USED FOR UNKNOWN INDICATION
     Dosage: 50 MG, U
     Route: 065
  2. LAMICTAL [Suspect]
     Active Substance: LAMOTRIGINE
     Dosage: 100 MG, UNK
     Route: 065

REACTIONS (16)
  - Skin exfoliation [Unknown]
  - Rash [Unknown]
  - Peripheral swelling [Unknown]
  - Abasia [Unknown]
  - Oropharyngeal pain [Unknown]
  - Scar [Not Recovered/Not Resolved]
  - Lip haemorrhage [Unknown]
  - Emotional distress [Not Recovered/Not Resolved]
  - Chromaturia [Unknown]
  - Pain [Unknown]
  - Terminal state [Recovered/Resolved]
  - Dyspnoea [Unknown]
  - Stevens-Johnson syndrome [Unknown]
  - Mouth haemorrhage [Unknown]
  - Nasal obstruction [Unknown]
  - Skin discolouration [Not Recovered/Not Resolved]
